FAERS Safety Report 9897324 (Version 2)
Quarter: 2014Q1

REPORT INFORMATION
  Report Type: Spontaneous
  Country: RU (occurrence: RU)
  Receive Date: 20140214
  Receipt Date: 20140304
  Transmission Date: 20141002
  Serious: Yes (Life-Threatening, Hospitalization)
  Sender: FDA-Public Use
  Company Number: RU-JNJFOC-20140206877

PATIENT
  Age: 30 Year
  Sex: Female
  Weight: 42 kg

DRUGS (11)
  1. DOXORUBICIN [Suspect]
     Indication: OVARIAN CANCER
     Route: 042
     Dates: start: 20131021, end: 20131021
  2. DOXORUBICIN [Suspect]
     Indication: OVARIAN CANCER
     Route: 042
     Dates: start: 20130506, end: 20130923
  3. EC145 [Suspect]
     Indication: OVARIAN CANCER
     Dosage: DAY 1,3,5,15,17,19
     Route: 042
     Dates: start: 20130506, end: 20130927
  4. EC145 [Suspect]
     Indication: OVARIAN CANCER
     Dosage: DAY 1,3,5,15,17,19
     Route: 042
     Dates: start: 20131008, end: 20131108
  5. PLACEBO [Suspect]
     Indication: OVARIAN CANCER
     Dosage: DAY 1,3,5,15,17,19
     Route: 042
     Dates: start: 20130506, end: 20130927
  6. PLACEBO [Suspect]
     Indication: OVARIAN CANCER
     Dosage: DAY 1,3,5,15,17,19
     Route: 042
     Dates: start: 20131008, end: 20131108
  7. EC20 [Suspect]
     Indication: SINGLE PHOTON EMISSION COMPUTERISED TOMOGRAM
     Route: 042
     Dates: start: 20130419, end: 20130419
  8. FOLIC ACID [Suspect]
     Indication: SINGLE PHOTON EMISSION COMPUTERISED TOMOGRAM
     Route: 042
     Dates: start: 20130419, end: 20130419
  9. PARACETAMOL [Concomitant]
     Indication: HYPERTHERMIA
     Route: 048
     Dates: start: 20131119, end: 20131119
  10. PARACETAMOL [Concomitant]
     Indication: HYPERTHERMIA
     Route: 048
     Dates: start: 20131115, end: 20131117
  11. IRON SUCCINYL-PROTEIN COMPLEX [Concomitant]
     Indication: PRODUCT USED FOR UNKNOWN INDICATION
     Route: 048
     Dates: start: 20131118

REACTIONS (2)
  - Anaemia [Recovered/Resolved]
  - Intestinal obstruction [Unknown]
